FAERS Safety Report 4379245-5 (Version None)
Quarter: 2004Q2

REPORT INFORMATION
  Report Type: 
  Country: None (occurrence: None)
  Receive Date: 20040610
  Receipt Date: 20040526
  Transmission Date: 20050107
  Serious: Yes (Hospitalization)
  Sender: FDA-Public Use
  Company Number: 2004SP000120

PATIENT
  Age: 7 Year
  Sex: 0

DRUGS (2)
  1. XOPENEX [Suspect]
     Dosage: 0.63 MG/3ML; INHALATION
     Route: 055
  2. ALBUTEROL [Concomitant]

REACTIONS (3)
  - HYPOTENSION [None]
  - HYPOXIA [None]
  - RASH [None]
